FAERS Safety Report 9729912 (Version 1)
Quarter: 2013Q4

REPORT INFORMATION
  Report Type: Spontaneous
  Country: IT (occurrence: IT)
  Receive Date: 20131204
  Receipt Date: 20131204
  Transmission Date: 20140711
  Serious: Yes (Hospitalization)
  Sender: FDA-Public Use
  Company Number: IT-FRI-1000051843

PATIENT
  Age: 64 Year
  Sex: Female

DRUGS (2)
  1. NEBIVOLOL [Suspect]
     Route: 048
     Dates: start: 20130601
  2. COAPROVEL [Suspect]
     Route: 048
     Dates: start: 20130601

REACTIONS (1)
  - Atrial fibrillation [Recovered/Resolved]
